FAERS Safety Report 20920484 (Version 2)
Quarter: 2022Q3

REPORT INFORMATION
  Report Type: Report from Study
  Country: US (occurrence: US)
  Receive Date: 20220606
  Receipt Date: 20220809
  Transmission Date: 20221027
  Serious: Yes (Hospitalization)
  Sender: FDA-Public Use
  Company Number: US-NOVARTISPH-NVSC2022US124617

PATIENT
  Age: 60 Year
  Sex: Male

DRUGS (1)
  1. COSENTYX [Suspect]
     Active Substance: SECUKINUMAB
     Indication: Psoriasis
     Dosage: 300 MG, (EVERY WEEK X 5 WEEKS THEN EVERY 4)
     Route: 058
     Dates: start: 20220422

REACTIONS (2)
  - Chronic obstructive pulmonary disease [Recovering/Resolving]
  - Product dispensing issue [Unknown]

NARRATIVE: CASE EVENT DATE: 20220520
